FAERS Safety Report 5195347-8 (Version None)
Quarter: 2006Q4

REPORT INFORMATION
  Report Type: 
  Country: None (occurrence: None)
  Receive Date: 20061229
  Receipt Date: 20061219
  Transmission Date: 20070319
  Serious: Yes (Other)
  Sender: FDA-Public Use
  Company Number: US-PFIZER INC-2006155078

PATIENT
  Sex: Female
  Weight: 58.1 kg

DRUGS (3)
  1. DEPO-PROVERA [Suspect]
     Indication: PREMENSTRUAL SYNDROME
     Dates: start: 20060901, end: 20060901
  2. DEPO-PROVERA [Suspect]
     Indication: MENSTRUAL DISCOMFORT
     Dates: start: 20061101, end: 20061101
  3. BACLOFEN [Concomitant]

REACTIONS (8)
  - ANXIETY [None]
  - CONDITION AGGRAVATED [None]
  - MENORRHAGIA [None]
  - METRORRHAGIA [None]
  - OVERDOSE [None]
  - PARANOIA [None]
  - PELVIC PAIN [None]
  - PREMENSTRUAL SYNDROME [None]
